FAERS Safety Report 4313599-0 (Version None)
Quarter: 2004Q1

REPORT INFORMATION
  Report Type: 
  Country: None (occurrence: None)
  Receive Date: 20040305
  Receipt Date: 20040218
  Transmission Date: 20041129
  Serious: Yes (Hospitalization)
  Sender: FDA-Public Use
  Company Number: DSA_80551_2004

PATIENT
  Age: 56 Year
  Sex: Female
  Weight: 53.5244 kg

DRUGS (3)
  1. XYREM [Suspect]
     Indication: NARCOLEPSY
     Dates: start: 20020101
  2. SODIUM OXYBATE [Suspect]
     Indication: NARCOLEPSY
     Dates: start: 20011017, end: 20020101
  3. EVISTA [Concomitant]

REACTIONS (2)
  - BLOOD THYROID STIMULATING HORMONE INCREASED [None]
  - PANCREATIC CARCINOMA METASTATIC [None]
